FAERS Safety Report 5929368-1 (Version None)
Quarter: 2008Q4

REPORT INFORMATION
  Report Type: 
  Country: None (occurrence: None)
  Receive Date: 20081020
  Receipt Date: 20051123
  Transmission Date: 20090506
  Serious: Yes (Hospitalization)
  Sender: FDA-Public Use
  Company Number: 2005-00795FE

PATIENT
  Sex: Female

DRUGS (8)
  1. MENOTROPINS [Suspect]
     Indication: INFERTILITY
  2. NITROFURANTOIN [Concomitant]
  3. CEFUROXINE AXETIL [Concomitant]
  4. FOLLITROPIN ALFA [Concomitant]
  5. TRIPTORELIN ACETATE [Concomitant]
  6. CHORIONIC GONADTROPIN [Concomitant]
  7. CEFONICIDE [Concomitant]
  8. AUGMENTIN '125' [Concomitant]

REACTIONS (9)
  - ALANINE AMINOTRANSFERASE INCREASED [None]
  - ASPARTATE AMINOTRANSFERASE INCREASED [None]
  - BACTERIA URINE IDENTIFIED [None]
  - ESCHERICHIA INFECTION [None]
  - INJECTION SITE ERYTHEMA [None]
  - INJECTION SITE REACTION [None]
  - LEUKOCYTOSIS [None]
  - PYREXIA [None]
  - SKIN LESION [None]
